FAERS Safety Report 18782628 (Version 1)
Quarter: 2021Q1

REPORT INFORMATION
  Report Type: Spontaneous
  Country: US (occurrence: US)
  Receive Date: 20210125
  Receipt Date: 20210125
  Transmission Date: 20210419
  Serious: No
  Sender: FDA-Public Use
  Company Number: US-ALLERGAN-2029412US

PATIENT
  Sex: Female

DRUGS (5)
  1. LIPITOR [Concomitant]
     Active Substance: ATORVASTATIN CALCIUM
  2. LISINOPRIL. [Concomitant]
     Active Substance: LISINOPRIL
  3. COREG [Concomitant]
     Active Substance: CARVEDILOL
  4. RESTASIS [Suspect]
     Active Substance: CYCLOSPORINE
     Indication: DRY EYE
     Dosage: UNK
     Route: 047
     Dates: start: 2011
  5. METOPROLOL. [Concomitant]
     Active Substance: METOPROLOL

REACTIONS (5)
  - Dry eye [Recovering/Resolving]
  - Inability to afford medication [Unknown]
  - Visual acuity reduced [Recovering/Resolving]
  - Vision blurred [Recovering/Resolving]
  - Eye swelling [Recovering/Resolving]
